FAERS Safety Report 7922231-6 (Version None)
Quarter: 2011Q4

REPORT INFORMATION
  Report Type: 
  Country: None (occurrence: None)
  Receive Date: 20111117
  Receipt Date: 20110208
  Transmission Date: 20120403
  Serious: No
  Sender: FDA-Public Use
  Company Number: US-AMGEN-USASP2010009354

PATIENT
  Age: 72 Year
  Sex: Female

DRUGS (3)
  1. ENBREL [Suspect]
     Indication: PSORIATIC ARTHROPATHY
     Dosage: 50 MG, QWK
     Dates: start: 20101123
  2. ENBREL [Suspect]
     Indication: PSORIASIS
  3. ENBREL [Suspect]

REACTIONS (7)
  - DRY SKIN [None]
  - RASH PAPULAR [None]
  - RASH PRURITIC [None]
  - WEIGHT INCREASED [None]
  - BACK PAIN [None]
  - INCREASED APPETITE [None]
  - INJECTION SITE PAIN [None]
